FAERS Safety Report 17062584 (Version 1)
Quarter: 2019Q4

REPORT INFORMATION
  Report Type: Report from Study
  Country: None (occurrence: AR)
  Receive Date: 20191122
  Receipt Date: 20191122
  Transmission Date: 20200122
  Serious: Yes (Other)
  Sender: FDA-Public Use
  Company Number: AR-ABBVIE-19K-007-3011307-00

PATIENT
  Age: 49 Year
  Sex: Female

DRUGS (1)
  1. HUMIRA [Suspect]
     Active Substance: ADALIMUMAB
     Indication: PSORIASIS
     Route: 058
     Dates: start: 20180417

REACTIONS (6)
  - Pharyngitis [Recovered/Resolved]
  - Dry skin [Unknown]
  - Seizure [Unknown]
  - Pyrexia [Unknown]
  - Lip dry [Unknown]
  - Syncope [Unknown]

NARRATIVE: CASE EVENT DATE: 201911
